FAERS Safety Report 25877082 (Version 1)
Quarter: 2025Q4

REPORT INFORMATION
  Report Type: Spontaneous
  Country: US (occurrence: None)
  Receive Date: 20251002
  Receipt Date: 20251002
  Transmission Date: 20260118
  Serious: Yes (Hospitalization)
  Sender: FDA-CTU
  Company Number: None

PATIENT
  Sex: Male

DRUGS (1)
  1. ENBREL [Suspect]
     Active Substance: ETANERCEPT
     Indication: Rheumatoid arthritis
     Dosage: INJECT 50 MG UNDER THE SKIN (SUBCUTANEOUS INJECTION) EVERY 7 DAYS?
     Route: 058
     Dates: start: 20221108

REACTIONS (1)
  - Colon cancer [None]
